FAERS Safety Report 9498803 (Version 1)
Quarter: 2013Q3

REPORT INFORMATION
  Report Type: Spontaneous
  Country: US (occurrence: None)
  Receive Date: 20130830
  Receipt Date: 20130830
  Transmission Date: 20140515
  Serious: Yes (Life-Threatening, Hospitalization)
  Sender: FDA-Public Use
  Company Number: 2013AP007603

PATIENT
  Age: 65 Year
  Sex: Female

DRUGS (23)
  1. LISINOPRIL TABLETS [Suspect]
     Dosage: 40 MG QD.
  2. ASPIRIN [Suspect]
     Indication: TRANSIENT ISCHAEMIC ATTACK
  3. IBUPROFEN [Suspect]
  4. MOXIFLOXACIN [Suspect]
     Indication: UPPER RESPIRATORY TRACT INFECTION
  5. IODIXANOL [Suspect]
     Indication: COMPUTERISED TOMOGRAM
  6. GUAIFENESIN [Concomitant]
  7. AMLODIPINE [Concomitant]
  8. METOPROLOL TARTRATE [Concomitant]
  9. HYDROCHLOROTHIAZIDE [Concomitant]
  10. SIMVASTATIN [Concomitant]
  11. GLIPIZIDE [Concomitant]
  12. BUPROPION [Concomitant]
  13. ALPRAZOLAM [Concomitant]
  14. METHOCARBAMOL [Concomitant]
  15. SALBUTAMOL [Concomitant]
  16. PREDNISONE [Concomitant]
  17. NALOXONE [Concomitant]
  18. FLUMAZENIL [Concomitant]
  19. CALCIUM + VITAMIN D [Concomitant]
  20. BENNZONATATE [Concomitant]
  21. FOLIC ACID [Concomitant]
  22. LORAZEPAM [Concomitant]
  23. SIMVASTATIN [Concomitant]

REACTIONS (3)
  - Angioedema [None]
  - Hypotension [None]
  - Respiratory distress [None]
